FAERS Safety Report 18522266 (Version 1)
Quarter: 2020Q4

REPORT INFORMATION
  Report Type: Spontaneous
  Country: US (occurrence: US)
  Receive Date: 20201119
  Receipt Date: 20201119
  Transmission Date: 20210114
  Serious: Yes (Disabling)
  Sender: FDA-Public Use
  Company Number: None

PATIENT
  Age: 35 Year
  Sex: Male
  Weight: 59.4 kg

DRUGS (3)
  1. CIPROFLOXACIN. [Suspect]
     Active Substance: CIPROFLOXACIN
     Indication: KIDNEY INFECTION
     Dates: start: 20201027, end: 20201029
  2. MULTIVITAMIN DAILY [Concomitant]
  3. FISH OIL [Concomitant]
     Active Substance: FISH OIL

REACTIONS (5)
  - Gait disturbance [None]
  - Pain [None]
  - Diplopia [None]
  - Costochondritis [None]
  - Movement disorder [None]

NARRATIVE: CASE EVENT DATE: 20201027
